FAERS Safety Report 25247889 (Version 1)
Quarter: 2025Q2

REPORT INFORMATION
  Report Type: Spontaneous
  Country: CH (occurrence: CH)
  Receive Date: 20250429
  Receipt Date: 20250429
  Transmission Date: 20250717
  Serious: Yes (Hospitalization)
  Sender: ROCHE
  Company Number: None

PATIENT
  Age: 27 Year
  Sex: Female

DRUGS (24)
  1. VALGANCICLOVIR [Suspect]
     Active Substance: VALGANCICLOVIR
     Indication: Product used for unknown indication
     Route: 065
     Dates: start: 20250226, end: 20250305
  2. CELLCEPT [Suspect]
     Active Substance: MYCOPHENOLATE MOFETIL
     Indication: Product used for unknown indication
     Dosage: RECEIVED 1 DOSE ON 03/09
     Route: 048
     Dates: end: 20250308
  3. CELLCEPT [Suspect]
     Active Substance: MYCOPHENOLATE MOFETIL
     Route: 048
     Dates: start: 20250309, end: 20250309
  4. CELLCEPT [Suspect]
     Active Substance: MYCOPHENOLATE MOFETIL
     Route: 048
     Dates: start: 20250309, end: 20250310
  5. TACROLIMUS [Suspect]
     Active Substance: TACROLIMUS
     Indication: Renal transplant
     Route: 065
     Dates: end: 20250305
  6. TACROLIMUS [Suspect]
     Active Substance: TACROLIMUS
     Route: 065
     Dates: start: 20250306, end: 20250308
  7. TACROLIMUS [Suspect]
     Active Substance: TACROLIMUS
     Route: 065
     Dates: start: 20250309
  8. HEPARIN [Concomitant]
     Active Substance: HEPARIN SODIUM
     Dates: start: 20250304, end: 20250305
  9. HEPARIN [Concomitant]
     Active Substance: HEPARIN SODIUM
     Dates: start: 20250305, end: 20250307
  10. ASPIRIN [Concomitant]
     Active Substance: ASPIRIN
     Dates: end: 20250310
  11. ATOVAQUONE [Concomitant]
     Active Substance: ATOVAQUONE
     Dates: start: 20250304
  12. TORSEMIDE [Concomitant]
     Active Substance: TORSEMIDE
     Dates: start: 20250305, end: 20250308
  13. LASIX [Concomitant]
     Active Substance: FUROSEMIDE
     Dates: start: 20250303, end: 20250305
  14. NOVORAPID [Concomitant]
     Active Substance: INSULIN ASPART
     Dates: start: 20250303
  15. PREDNISONE [Concomitant]
     Active Substance: PREDNISONE
     Dates: start: 20250303, end: 20250306
  16. PREDNISONE [Concomitant]
     Active Substance: PREDNISONE
     Dates: start: 20250307, end: 20250307
  17. PREDNISONE [Concomitant]
     Active Substance: PREDNISONE
     Dates: start: 20250308
  18. METOPROLOL SUCCINATE [Concomitant]
     Active Substance: METOPROLOL SUCCINATE
  19. SODIUM BICARBONATE [Concomitant]
     Active Substance: SODIUM BICARBONATE
  20. FILGRASTIM [Concomitant]
     Active Substance: FILGRASTIM
     Dates: start: 20250306
  21. CHOLECALCIFEROL [Concomitant]
     Active Substance: CHOLECALCIFEROL
  22. AMLODIPINE [Concomitant]
     Active Substance: AMLODIPINE BESYLATE
  23. INSULIN HUMAN [Concomitant]
     Active Substance: INSULIN HUMAN
     Dates: start: 20250306
  24. CALCIUM\CHOLECALCIFEROL [Concomitant]
     Active Substance: CALCIUM\CHOLECALCIFEROL

REACTIONS (1)
  - Agranulocytosis [Recovered/Resolved]

NARRATIVE: CASE EVENT DATE: 20250307
